FAERS Safety Report 9013690 (Version 2)
Quarter: 2013Q1

REPORT INFORMATION
  Report Type: Spontaneous
  Country: CA (occurrence: CA)
  Receive Date: 20130115
  Receipt Date: 20130124
  Transmission Date: 20140127
  Serious: Yes (Hospitalization)
  Sender: FDA-Public Use
  Company Number: PHHY2013CA003105

PATIENT
  Age: 78 Year
  Sex: Female

DRUGS (3)
  1. ACLASTA [Suspect]
     Indication: OSTEOPOROSIS
     Dosage: UNK
     Route: 042
     Dates: start: 20110331
  2. ACLASTA [Suspect]
     Dosage: UNK
     Route: 042
     Dates: start: 20120403
  3. ANESTHETICS [Suspect]

REACTIONS (7)
  - Ankle fracture [Recovering/Resolving]
  - Ligament sprain [Recovering/Resolving]
  - Blood pressure abnormal [Recovering/Resolving]
  - Thyroid disorder [Recovering/Resolving]
  - Inappropriate antidiuretic hormone secretion [Recovering/Resolving]
  - Hyponatraemia [Recovering/Resolving]
  - Hypotension [Recovering/Resolving]
